FAERS Safety Report 9424148 (Version 2)
Quarter: 2013Q3

REPORT INFORMATION
  Report Type: Spontaneous
  Country: DE (occurrence: DE)
  Receive Date: 20130729
  Receipt Date: 20130906
  Transmission Date: 20140515
  Serious: Yes (Other)
  Sender: FDA-Public Use
  Company Number: DE-ROCHE-1252697

PATIENT
  Sex: Male
  Weight: 61 kg

DRUGS (7)
  1. MABTHERA [Suspect]
     Indication: B-CELL LYMPHOMA
     Route: 065
  2. CYCLOPHOSPHAMIDE [Concomitant]
     Indication: B-CELL LYMPHOMA
  3. DOXORUBICIN [Concomitant]
     Indication: B-CELL LYMPHOMA
  4. VINCRISTINE [Concomitant]
     Indication: B-CELL LYMPHOMA
  5. PREDNISONE [Concomitant]
     Indication: B-CELL LYMPHOMA
  6. METHOTREXAT [Concomitant]
     Indication: B-CELL LYMPHOMA
     Route: 037
  7. DEXAMETHASON [Concomitant]
     Indication: B-CELL LYMPHOMA
     Route: 037

REACTIONS (4)
  - Cardiac fibrillation [Unknown]
  - Cardiac flutter [Unknown]
  - Cardiac disorder [Unknown]
  - Chronic obstructive pulmonary disease [Unknown]
